FAERS Safety Report 8551765-9 (Version None)
Quarter: 2012Q3

REPORT INFORMATION
  Report Type: 
  Country: None (occurrence: None)
  Receive Date: 20120730
  Receipt Date: 20120725
  Transmission Date: 20120928
  Serious: Yes (Other)
  Sender: FDA-Public Use
  Company Number: US-PFIZER INC-2012140731

PATIENT
  Sex: Female
  Weight: 113.4 kg

DRUGS (22)
  1. ALLOPURINOL [Concomitant]
     Indication: GOUT
     Dosage: UNK
  2. VISTARIL [Concomitant]
     Dosage: UNK
  3. BYETTA [Concomitant]
     Dosage: UNK
  4. CHANTIX [Concomitant]
     Dosage: UNK
  5. LOPID [Concomitant]
     Dosage: UNK
  6. LISINOPRIL [Concomitant]
     Dosage: UNK
  7. DICLOFENAC [Concomitant]
     Dosage: UNK
  8. LEVOTHYROXINE [Concomitant]
     Dosage: UNK
  9. FOLIC ACID [Concomitant]
     Dosage: UNK
  10. OMEPRAZOLE [Concomitant]
     Dosage: UNK
  11. HYDROCHLOROTHIAZIDE [Concomitant]
     Dosage: UNK
  12. ASTEPRO [Concomitant]
     Dosage: UNK
  13. PROBENECID [Concomitant]
     Dosage: UNK, AS NEEDED
  14. METFORMIN [Concomitant]
     Dosage: UNK
  15. MOTRIN [Concomitant]
     Dosage: UNK
  16. NEURONTIN [Suspect]
     Indication: DIABETIC NEUROPATHY
     Dosage: 300 MG, 3X/DAY
     Route: 048
     Dates: start: 20100101
  17. SIMVASTATIN [Concomitant]
     Dosage: UNK
  18. SOMA [Concomitant]
     Dosage: UNK
  19. METOPROLOL [Concomitant]
     Dosage: UNK
  20. HYDROCODONE [Concomitant]
     Dosage: UNK, AS NEEDED
  21. VALIUM [Concomitant]
     Dosage: UNK, AS NEEDED
  22. INDOMETHACIN [Concomitant]
     Dosage: UNK, AS NEEDED

REACTIONS (4)
  - PAIN IN EXTREMITY [None]
  - JOINT CREPITATION [None]
  - RHEUMATOID ARTHRITIS [None]
  - BLOOD CHOLESTEROL INCREASED [None]
